FAERS Safety Report 11247044 (Version 1)
Quarter: 2015Q3

REPORT INFORMATION
  Report Type: Spontaneous
  Country: US (occurrence: US)
  Receive Date: 20150708
  Receipt Date: 20150708
  Transmission Date: 20151125
  Serious: No
  Sender: FDA-Public Use
  Company Number: US-JNJFOC-20150620039

PATIENT
  Sex: Female
  Weight: 55.34 kg

DRUGS (2)
  1. FENTANYL. [Suspect]
     Active Substance: FENTANYL
     Indication: PAIN
     Route: 062
     Dates: start: 2005
  2. FENTANYL. [Suspect]
     Active Substance: FENTANYL
     Indication: PAIN
     Route: 062

REACTIONS (8)
  - Hyperhidrosis [Not Recovered/Not Resolved]
  - Product quality issue [Unknown]
  - Application site reaction [Not Recovered/Not Resolved]
  - Drug ineffective [Unknown]
  - Feeling hot [Not Recovered/Not Resolved]
  - Wrong technique in product usage process [Unknown]
  - Application site infection [Not Recovered/Not Resolved]
  - Rash [Not Recovered/Not Resolved]
